FAERS Safety Report 6867233-6 (Version None)
Quarter: 2010Q3

REPORT INFORMATION
  Report Type: 
  Country: None (occurrence: None)
  Receive Date: 20100722
  Receipt Date: 20100713
  Transmission Date: 20110219
  Serious: Yes (Hospitalization)
  Sender: FDA-Public Use
  Company Number: FR-GILEAD-2008-0016487

PATIENT
  Sex: Male
  Weight: 52 kg

DRUGS (10)
  1. TRUVADA [Suspect]
     Indication: HIV INFECTION
     Route: 048
     Dates: start: 20080502
  2. KALETRA [Concomitant]
     Indication: HIV INFECTION
     Route: 048
     Dates: start: 20080502
  3. BACTRIM [Concomitant]
     Indication: ANTIFUNGAL PROPHYLAXIS
     Route: 048
     Dates: start: 20080508
  4. ZELITREX [Concomitant]
     Route: 048
     Dates: start: 20080514
  5. TRIFLUCAN [Concomitant]
     Indication: CANDIDIASIS
     Dates: start: 20080514
  6. FOLINORAL [Concomitant]
     Indication: ANAEMIA
     Dates: start: 20080401
  7. FUNGIZONE [Concomitant]
  8. ATARAX [Concomitant]
  9. MOTILIUM [Concomitant]
  10. CORTANCYL [Concomitant]
     Route: 048
     Dates: start: 20080428

REACTIONS (3)
  - HYPOPHOSPHATAEMIA [None]
  - OESOPHAGEAL CANDIDIASIS [None]
  - ORAL CANDIDIASIS [None]
